FAERS Safety Report 8430377-1 (Version None)
Quarter: 2012Q2

REPORT INFORMATION
  Report Type: 
  Country: None (occurrence: None)
  Receive Date: 20120612
  Receipt Date: 20120529
  Transmission Date: 20120825
  Serious: Yes (Congenital Anomaly, Other)
  Sender: FDA-Public Use
  Company Number: KR-ACTELION-A-CH2012-65468

PATIENT
  Age: 42 Year
  Sex: Female
  Weight: 53 kg

DRUGS (5)
  1. ACT-293987 [Suspect]
     Indication: PULMONARY ARTERIAL HYPERTENSION
     Dosage: 400 ?G, BID
     Route: 048
     Dates: start: 20101124, end: 20120129
  2. CONTRACEPTIVES [Concomitant]
  3. TRACLEER [Suspect]
     Indication: PULMONARY ARTERIAL HYPERTENSION
     Dosage: UNK
     Route: 048
     Dates: start: 20080109, end: 20120215
  4. ACT-293987 [Suspect]
     Dosage: 200 ?G, QD
     Route: 048
     Dates: start: 20101117, end: 20101117
  5. ACT-293987 [Suspect]
     Dosage: 200 ?G, BID
     Route: 048
     Dates: start: 20101118, end: 20101123

REACTIONS (3)
  - AMNIOCENTESIS [None]
  - PREGNANCY [None]
  - NEURAL TUBE DEFECT [None]
